FAERS Safety Report 13666931 (Version 1)
Quarter: 2017Q2

REPORT INFORMATION
  Report Type: Spontaneous
  Country: US (occurrence: US)
  Receive Date: 20170619
  Receipt Date: 20170619
  Transmission Date: 20170830
  Serious: No
  Sender: FDA-Public Use
  Company Number: US-ROCHE-1176071

PATIENT
  Sex: Female
  Weight: 76.73 kg

DRUGS (19)
  1. XELODA [Suspect]
     Active Substance: CAPECITABINE
     Indication: NEOPLASM MALIGNANT
  2. ADVAIR DISKUS [Concomitant]
     Active Substance: FLUTICASONE PROPIONATE\SALMETEROL XINAFOATE
     Indication: CHRONIC OBSTRUCTIVE PULMONARY DISEASE
     Dosage: 250-50 UG, 1 PUFF
     Route: 065
     Dates: start: 20120423
  3. ASPIRIN. [Concomitant]
     Active Substance: ASPIRIN
     Route: 048
  4. VICODIN [Concomitant]
     Active Substance: ACETAMINOPHEN\HYDROCODONE BITARTRATE
     Indication: PAIN
     Dosage: 5-500 MG
     Route: 048
  5. XELODA [Suspect]
     Active Substance: CAPECITABINE
     Indication: BONE CANCER
     Dosage: 7 DAYS ON AND 7 DAYS OFF
     Route: 048
     Dates: start: 20121222
  6. OXYGEN. [Concomitant]
     Active Substance: OXYGEN
     Indication: CHRONIC OBSTRUCTIVE PULMONARY DISEASE
     Route: 065
  7. COMBIVENT [Concomitant]
     Active Substance: ALBUTEROL SULFATE\IPRATROPIUM BROMIDE
     Indication: CHRONIC OBSTRUCTIVE PULMONARY DISEASE
     Dosage: 2 PUFFS
     Route: 065
     Dates: start: 20120209
  8. XANAX [Concomitant]
     Active Substance: ALPRAZOLAM
     Route: 048
  9. TYLENOL [Concomitant]
     Active Substance: ACETAMINOPHEN
     Indication: ARTHRALGIA
     Route: 048
  10. NEULASTA [Concomitant]
     Active Substance: PEGFILGRASTIM
     Indication: ARTHRALGIA
     Dosage: 6 MG/0.6 ML
     Route: 065
  11. ANTIVERT [Concomitant]
     Active Substance: MECLIZINE HYDROCHLORIDE
     Route: 048
  12. XELODA [Suspect]
     Active Substance: CAPECITABINE
     Indication: BREAST CANCER METASTATIC
     Dosage: 14 DAYS ON AND 7 DAYS OFF
     Route: 048
     Dates: start: 20121225
  13. PROCHLORPERAZINE MALEATE. [Concomitant]
     Active Substance: PROCHLORPERAZINE MALEATE
     Indication: NAUSEA
     Dosage: 4-6 HRS
     Route: 048
  14. COMPAZINE [Concomitant]
     Active Substance: PROCHLORPERAZINE MALEATE
  15. VITABASIC [Concomitant]
     Dosage: DAILY
     Route: 065
  16. KLOR-CON M [Concomitant]
     Active Substance: POTASSIUM CHLORIDE
     Indication: ARTHRALGIA
     Route: 048
  17. IXEMPRA [Concomitant]
     Active Substance: IXABEPILONE
     Indication: ARTHRALGIA
  18. MUCINEX DM [Concomitant]
     Active Substance: DEXTROMETHORPHAN HYDROBROMIDE\GUAIFENESIN
     Indication: ARTHRALGIA
     Dosage: DAILY
     Route: 048
  19. TRIAMTERENE/HCTZ (75/50) [Concomitant]
     Indication: ARTHRALGIA
     Route: 048

REACTIONS (3)
  - Nausea [Unknown]
  - Abdominal discomfort [Unknown]
  - Dyspnoea [Unknown]
